FAERS Safety Report 4479608-3 (Version None)
Quarter: 2004Q4

REPORT INFORMATION
  Report Type: 
  Country: None (occurrence: None)
  Receive Date: 20041015
  Receipt Date: 20041005
  Transmission Date: 20050328
  Serious: Yes (Other)
  Sender: FDA-Public Use
  Company Number: 200414557BCC

PATIENT
  Age: 19 Year
  Sex: Female
  Weight: 83.9154 kg

DRUGS (2)
  1. ALEVE [Suspect]
     Indication: PAIN
     Dosage: 600 MG, ONCE, ORAL
     Route: 048
     Dates: start: 20040920
  2. LAMISIL [Concomitant]

REACTIONS (3)
  - ANORECTAL DISORDER [None]
  - HAEMATOCHEZIA [None]
  - LACERATION [None]
